FAERS Safety Report 4530149-4 (Version None)
Quarter: 2004Q4

REPORT INFORMATION
  Report Type: 
  Country: None (occurrence: None)
  Receive Date: 20041215
  Receipt Date: 20041202
  Transmission Date: 20050328
  Serious: Yes (Death, Hospitalization)
  Sender: FDA-Public Use
  Company Number: HQWYE856608DEC04

PATIENT
  Age: 71 Year
  Sex: Male
  Weight: 75.8 kg

DRUGS (11)
  1. MYLOTARG [Suspect]
     Indication: ACUTE MYELOID LEUKAEMIA
     Dosage: SEE IMAGE
     Route: 042
     Dates: start: 20041108, end: 20041108
  2. MYLOTARG [Suspect]
     Indication: ACUTE MYELOID LEUKAEMIA
     Dosage: SEE IMAGE
     Route: 042
     Dates: start: 20041115, end: 20041115
  3. CYTARABINE [Suspect]
     Indication: ACUTE MYELOID LEUKAEMIA
     Dosage: 200 MG/M^2 1X PER 1 DAY; INTRAVENOUS
     Route: 042
     Dates: start: 20041108, end: 20041114
  4. MILK OF MAGNESIA (MAGNESIUM HYDROXIDE) [Concomitant]
  5. TYLENOL [Concomitant]
  6. DIPHENHYDRAMINE HCL [Concomitant]
  7. LORTAB [Concomitant]
  8. MORPHINE SULFATE [Concomitant]
  9. EPINEPHRINE [Concomitant]
  10. SOLU-CORTEF [Concomitant]
  11. AMBIEN [Concomitant]

REACTIONS (10)
  - AGITATION [None]
  - CYSTITIS HAEMORRHAGIC [None]
  - FEBRILE NEUTROPENIA [None]
  - HEPATIC FAILURE [None]
  - MENTAL STATUS CHANGES [None]
  - RENAL FAILURE [None]
  - RESPIRATORY DISTRESS [None]
  - SEDATION [None]
  - SEPSIS [None]
  - URINARY TRACT INFECTION FUNGAL [None]
